FAERS Safety Report 9444596 (Version 1)
Quarter: 2013Q3

REPORT INFORMATION
  Report Type: Spontaneous
  Country: US (occurrence: None)
  Receive Date: 20130806
  Receipt Date: 20130806
  Transmission Date: 20140515
  Serious: Yes (Disabling)
  Sender: FDA-Public Use
  Company Number: None

PATIENT
  Age: 59 Year
  Sex: Male
  Weight: 88.45 kg

DRUGS (1)
  1. CIALIS 10MG LILLY [Suspect]
     Indication: ERECTILE DYSFUNCTION
     Route: 048
     Dates: start: 20130729, end: 20130729

REACTIONS (4)
  - Back pain [None]
  - Arthralgia [None]
  - Myalgia [None]
  - Rash [None]
